FAERS Safety Report 25412634 (Version 1)
Quarter: 2025Q2

REPORT INFORMATION
  Report Type: Spontaneous
  Country: US (occurrence: None)
  Receive Date: 20250606
  Receipt Date: 20250606
  Transmission Date: 20250716
  Serious: Yes (Hospitalization)
  Sender: FDA-CTU
  Company Number: None

PATIENT
  Sex: Male

DRUGS (1)
  1. JAYPIRCA [Suspect]
     Active Substance: PIRTOBRUTINIB
     Indication: Non-Hodgkin^s lymphoma
     Dosage: FREQUENCY : DAILY;?
     Route: 048
     Dates: start: 20231114

REACTIONS (8)
  - Heart rate decreased [None]
  - Dysgeusia [None]
  - Neuropathy peripheral [None]
  - Sciatica [None]
  - Depressed mood [None]
  - Impaired work ability [None]
  - Emotional disorder [None]
  - Pain [None]
